FAERS Safety Report 8814400 (Version 1)
Quarter: 2012Q4

REPORT INFORMATION
  Report Type: Spontaneous
  Country: US (occurrence: None)
  Receive Date: 20120925
  Receipt Date: 20120925
  Transmission Date: 20130627
  Serious: Yes (Hospitalization, Other)
  Sender: FDA-Public Use
  Company Number: 2012/137

PATIENT
  Age: 48 Year
  Sex: Female

DRUGS (1)
  1. OLANZAPINE [Suspect]
     Indication: BIPOLAR I DISORDER
     Dosage: 10mg/day
     Dates: start: 200809, end: 200812

REACTIONS (14)
  - Stupor [None]
  - Delusion [None]
  - Rhabdomyolysis [None]
  - Autonomic failure syndrome [None]
  - Muscle rigidity [None]
  - Delirium [None]
  - Tachycardia [None]
  - Hyperhidrosis [None]
  - Bladder dysfunction [None]
  - Waxy flexibility [None]
  - Mutism [None]
  - Negativism [None]
  - Anxiety [None]
  - Unevaluable event [None]
